FAERS Safety Report 6601131-8 (Version None)
Quarter: 2010Q1

REPORT INFORMATION
  Report Type: 
  Country: None (occurrence: None)
  Receive Date: 20100224
  Receipt Date: 20100224
  Transmission Date: 20100710
  Serious: Yes (Other)
  Sender: FDA-Public Use
  Company Number: None

PATIENT
  Age: 37 Year
  Sex: Female
  Weight: 72.5755 kg

DRUGS (1)
  1. YASMIN [Suspect]
     Dosage: 1 TABLET 1XDAY ORAL
     Route: 048
     Dates: start: 20040901, end: 20080701

REACTIONS (3)
  - BLADDER DISORDER [None]
  - DYSPNOEA [None]
  - OEDEMA PERIPHERAL [None]
